FAERS Safety Report 5979140-1 (Version None)
Quarter: 2008Q4

REPORT INFORMATION
  Report Type: 
  Country: None (occurrence: None)
  Receive Date: 20081204
  Receipt Date: 20080303
  Transmission Date: 20090506
  Serious: No
  Sender: FDA-Public Use
  Company Number: US-ABBOTT-08P-163-0440884-00

PATIENT
  Sex: Female
  Weight: 77.18 kg

DRUGS (7)
  1. TRICOR [Suspect]
     Indication: BLOOD TRIGLYCERIDES INCREASED
     Route: 048
     Dates: start: 20080225, end: 20080302
  2. ATENOLOL [Concomitant]
     Indication: HEART RATE INCREASED
     Route: 048
  3. OESTRANORM [Concomitant]
     Indication: HORMONE REPLACEMENT THERAPY
     Route: 048
  4. CELECOXIB [Concomitant]
     Indication: ARTHRITIS
     Route: 048
  5. ELMERON [Concomitant]
     Indication: CYSTITIS
     Route: 048
  6. RANITIDINE [Concomitant]
     Indication: PROPHYLAXIS
     Route: 048
  7. MONTELUKAST SODIUM [Concomitant]
     Indication: HYPERSENSITIVITY
     Route: 055

REACTIONS (4)
  - ABDOMINAL PAIN UPPER [None]
  - HYPOTENSION [None]
  - LOSS OF CONSCIOUSNESS [None]
  - RECTAL HAEMORRHAGE [None]
